FAERS Safety Report 10056445 (Version 3)
Quarter: 2014Q4

REPORT INFORMATION
  Report Type: Spontaneous
  Country: US (occurrence: None)
  Receive Date: 20140401
  Receipt Date: 20141016
  Transmission Date: 20150528
  Serious: Yes (Other)
  Sender: FDA-Public Use
  Company Number: 2014-US-003584

PATIENT
  Age: 65 Year
  Sex: Female
  Weight: 68 kg

DRUGS (8)
  1. XYREM [Suspect]
     Active Substance: SODIUM OXYBATE
     Indication: NARCOLEPSY
     Route: 048
     Dates: start: 201302
  2. LISINOPRIL. [Concomitant]
     Active Substance: LISINOPRIL
  3. LIPITOR [Concomitant]
     Active Substance: ATORVASTATIN CALCIUM
  4. ASTELIN (AZELASTINE HYDROCHLORIDE) [Concomitant]
     Active Substance: AZELASTINE HYDROCHLORIDE
  5. SYNTHROID [Concomitant]
     Active Substance: LEVOTHYROXINE SODIUM
  6. CHLORTHALIDONE (CHLORTALIDONE) [Concomitant]
     Active Substance: CHLORTHALIDONE
  7. DURAGESIC (FENTANYL) [Concomitant]
  8. NUVIGIL [Concomitant]
     Active Substance: ARMODAFINIL

REACTIONS (5)
  - Phaeochromocytoma [None]
  - Hyperhidrosis [None]
  - Catecholamines urine increased [None]
  - Tremor [None]
  - Tachycardia [None]
